FAERS Safety Report 4265944-2 (Version None)
Quarter: 2004Q1

REPORT INFORMATION
  Report Type: 
  Country: None (occurrence: None)
  Receive Date: 20040106
  Receipt Date: 20031223
  Transmission Date: 20041129
  Serious: Yes (Hospitalization)
  Sender: FDA-Public Use
  Company Number: 03P-083-0245268-00

PATIENT
  Age: 14 Year
  Sex: Male

DRUGS (2)
  1. ERITROCINA BASE TABLETS (ERYTHROMYCIN) (ERYTHROMYCIN) [Suspect]
     Indication: BRONCHOPNEUMONIA
     Dosage: 1200 MG, 1 IN 1 D
     Dates: start: 20031206, end: 20031210
  2. TACROLIMUS [Concomitant]

REACTIONS (1)
  - BLOOD CREATININE INCREASED [None]
